FAERS Safety Report 9236428 (Version 1)
Quarter: 2013Q2

REPORT INFORMATION
  Report Type: Spontaneous
  Country: DE (occurrence: DE)
  Receive Date: 20130417
  Receipt Date: 20130417
  Transmission Date: 20140414
  Serious: Yes (Disabling, Other)
  Sender: FDA-Public Use
  Company Number: GXKR2013DE001489

PATIENT
  Age: 55 Year
  Sex: Female

DRUGS (8)
  1. TILIDINE+NALOXONE [Suspect]
  2. DICLO SL 1A PHARMA [Suspect]
     Route: 048
  3. IBUPROFEN [Suspect]
     Route: 048
  4. GABAPENTIN [Suspect]
     Route: 048
  5. AMINEURIN [Suspect]
     Route: 048
  6. TILIDIN ^RATIOPHARM^ [Suspect]
     Route: 048
  7. VALORON N [Suspect]
  8. RESTEX [Suspect]

REACTIONS (3)
  - Intentional drug misuse [Unknown]
  - Drug dependence [Unknown]
  - Abdominal discomfort [Unknown]
